FAERS Safety Report 12012254 (Version 2)
Quarter: 2017Q4

REPORT INFORMATION
  Report Type: Spontaneous
  Country: CH (occurrence: CH)
  Receive Date: 20160205
  Receipt Date: 20171024
  Transmission Date: 20180320
  Serious: Yes (Other)
  Sender: FDA-Public Use
  Company Number: CH-ELI_LILLY_AND_COMPANY-CH201601010163

PATIENT
  Age: 37 Year
  Sex: Female

DRUGS (5)
  1. TEMESTA                            /00273201/ [Suspect]
     Active Substance: LORAZEPAM
     Indication: PRODUCT USED FOR UNKNOWN INDICATION
     Dosage: .5 MG, UNK
     Route: 048
     Dates: start: 2015
  2. TEMESTA                            /00273201/ [Suspect]
     Active Substance: LORAZEPAM
     Dosage: UNK
     Route: 065
     Dates: start: 2016
  3. ZYPREXA [Suspect]
     Active Substance: OLANZAPINE
     Indication: SCHIZOPHRENIA
     Dosage: UNK UNK, UNKNOWN
     Route: 048
     Dates: start: 2015, end: 201507
  4. SOLIAN [Suspect]
     Active Substance: AMISULPRIDE
     Indication: SCHIZOPHRENIA
     Dosage: UNK UNK, UNKNOWN
     Route: 048
     Dates: start: 2015, end: 201507
  5. ZYPREXA [Suspect]
     Active Substance: OLANZAPINE
     Dosage: UNK
     Route: 065
     Dates: start: 2016

REACTIONS (4)
  - Agitation [Unknown]
  - Maternal exposure during pregnancy [Recovered/Resolved]
  - Anxiety [Unknown]
  - Aggression [Unknown]

NARRATIVE: CASE EVENT DATE: 201506
